FAERS Safety Report 5115092-4 (Version None)
Quarter: 2006Q3

REPORT INFORMATION
  Report Type: 
  Country: None (occurrence: None)
  Receive Date: 20060926
  Receipt Date: 20060718
  Transmission Date: 20061208
  Serious: No
  Sender: FDA-Public Use
  Company Number: US-BRISTOL-MYERS SQUIBB COMPANY-13445036

PATIENT
  Age: 52 Year
  Sex: Male

DRUGS (4)
  1. BARACLUDE TABS [Suspect]
  2. ALPRAZOLAM [Concomitant]
  3. NORCO [Concomitant]
  4. AMBIEN [Concomitant]

REACTIONS (2)
  - FATIGUE [None]
  - WEIGHT DECREASED [None]
